FAERS Safety Report 8209130-X (Version None)
Quarter: 2012Q1

REPORT INFORMATION
  Report Type: 
  Country: None (occurrence: None)
  Receive Date: 20120314
  Receipt Date: 20101012
  Transmission Date: 20120608
  Serious: Yes (Other)
  Sender: FDA-Public Use
  Company Number: CA-BAYER-201023095NA

PATIENT
  Sex: Female

DRUGS (4)
  1. CALCIUM [Concomitant]
  2. MIRENA [Suspect]
     Dosage: 20 ?G/D, CONT
     Route: 015
     Dates: start: 20040801
  3. ASCORBIC ACID [Concomitant]
  4. MAGNESIUM [Concomitant]

REACTIONS (8)
  - CERVICAL POLYP [None]
  - ANXIETY [None]
  - BREAST CYST [None]
  - BREAST PAIN [None]
  - SKIN DISORDER [None]
  - DEVICE DIFFICULT TO USE [None]
  - ABDOMINAL PAIN LOWER [None]
  - BREAST TENDERNESS [None]
